FAERS Safety Report 8027020-2 (Version None)
Quarter: 2012Q1

REPORT INFORMATION
  Report Type: 
  Country: None (occurrence: None)
  Receive Date: 20120106
  Receipt Date: 20120103
  Transmission Date: 20120608
  Serious: Yes (Other)
  Sender: FDA-Public Use
  Company Number: US-PFIZER INC-2012002110

PATIENT
  Sex: Female
  Weight: 59.8 kg

DRUGS (9)
  1. EFFEXOR XR [Suspect]
     Dosage: 75MG IN THE MORNING AND 37.5MG IN THE AFTERNOON
     Dates: start: 20110301
  2. EFFEXOR XR [Suspect]
     Dosage: 75 MG, DAILY
     Dates: start: 20100801
  3. NITROFURANTOIN [Concomitant]
     Indication: CYSTITIS
     Dosage: 100 MG, DAILY
  4. EFFEXOR XR [Suspect]
     Dosage: 75MG IN THE MORNING AND 37.5MG IN THE AFTERNOON
  5. PROTONIX [Concomitant]
     Indication: ULCER
     Dosage: 40 MG, DAILY
  6. PRAVASTATIN [Concomitant]
     Indication: PROPHYLAXIS
     Dosage: 40 MG, DAILY
  7. EFFEXOR XR [Suspect]
     Dosage: 75 MG, DAILY
     Dates: end: 20100101
  8. EFFEXOR XR [Suspect]
     Indication: DEPRESSION
     Dosage: 75 MG, DAILY
     Route: 048
     Dates: start: 20060101
  9. VENLAFAXINE HCL [Suspect]
     Indication: DEPRESSION
     Dosage: 75 MG, DAILY
     Dates: start: 20100701, end: 20100101

REACTIONS (2)
  - PSORIATIC ARTHROPATHY [None]
  - FEELING ABNORMAL [None]
